FAERS Safety Report 4999488-7 (Version None)
Quarter: 2006Q2

REPORT INFORMATION
  Report Type: 
  Country: None (occurrence: None)
  Receive Date: 20060509
  Receipt Date: 20060509
  Transmission Date: 20061013
  Serious: No
  Sender: FDA-Public Use
  Company Number: None

PATIENT
  Age: 55 Year
  Sex: Female

DRUGS (1)
  1. GADOLENIUM [Suspect]

REACTIONS (7)
  - ANGIONEUROTIC OEDEMA [None]
  - DYSPHAGIA [None]
  - DYSPNOEA [None]
  - OCULAR HYPERAEMIA [None]
  - RHINORRHOEA [None]
  - SWELLING FACE [None]
  - URTICARIA [None]
